FAERS Safety Report 7623796 (Version 2)
Quarter: 2013Q1

REPORT INFORMATION
  Report Type: Spontaneous
  Country: ID (occurrence: ID)
  Receive Date: 20101011
  Receipt Date: 20130218
  Transmission Date: 20140127
  Serious: Yes (Death)
  Sender: FDA-Public Use
  Company Number: PHHY2010ID66595

PATIENT
  Sex: Male

DRUGS (1)
  1. GLIVEC [Suspect]
     Indication: CHRONIC MYELOID LEUKAEMIA
     Dosage: 400 MG
     Route: 048
     Dates: start: 20080326, end: 20100523

REACTIONS (1)
  - Death [Fatal]
